FAERS Safety Report 9117587 (Version 2)
Quarter: 2013Q1

REPORT INFORMATION
  Report Type: Spontaneous
  Country: US (occurrence: US)
  Receive Date: 20130208
  Receipt Date: 20130312
  Transmission Date: 20140127
  Serious: No
  Sender: FDA-Public Use
  Company Number: US-PFIZER INC-2013049605

PATIENT
  Age: 78 Year
  Sex: Female
  Weight: 86.17 kg

DRUGS (6)
  1. CELEBREX [Suspect]
     Indication: OSTEOPOROSIS
     Dosage: 200 MG, 1X/DAY
     Dates: start: 20130202
  2. CELEBREX [Suspect]
     Indication: RHEUMATOID ARTHRITIS
  3. CYMBALTA [Suspect]
     Indication: OSTEOPOROSIS
     Dosage: 200 MG, ONCE
     Dates: start: 20130202, end: 20130202
  4. GLIMEPIRIDE [Concomitant]
     Indication: DIABETES MELLITUS
     Dosage: 25 MG, 1X/DAY
     Route: 048
  5. HYDROCHLOROTHIAZIDE [Concomitant]
     Indication: HYPERTENSION
     Dosage: 25 MG, 1X/DAY
     Route: 048
  6. LOVAZA [Concomitant]
     Dosage: TWO 1 G CAPSULES, 2X/DAY
     Route: 048

REACTIONS (6)
  - Gastric disorder [Not Recovered/Not Resolved]
  - Oedema peripheral [Not Recovered/Not Resolved]
  - Abdominal pain upper [Unknown]
  - Pain in extremity [Unknown]
  - Nausea [Unknown]
  - Drug ineffective [Unknown]
